FAERS Safety Report 7001518-8 (Version None)
Quarter: 2010Q3

REPORT INFORMATION
  Report Type: 
  Country: None (occurrence: None)
  Receive Date: 20100920
  Receipt Date: 20100915
  Transmission Date: 20110219
  Serious: Yes (Death, Hospitalization)
  Sender: FDA-Public Use
  Company Number: AU-ROCHE-727433

PATIENT
  Age: 78 Year
  Sex: Male

DRUGS (2)
  1. XELODA [Suspect]
     Indication: COLORECTAL CANCER
     Route: 065
  2. XELODA [Suspect]
     Dosage: DOSE DECREASED SLIGHTLY
     Route: 065

REACTIONS (1)
  - DIARRHOEA [None]
